FAERS Safety Report 16374869 (Version 2)
Quarter: 2019Q2

REPORT INFORMATION
  Report Type: Spontaneous
  Country: CL (occurrence: CL)
  Receive Date: 20190531
  Receipt Date: 20190611
  Transmission Date: 20190711
  Serious: Yes (Death, Other)
  Sender: FDA-Public Use
  Company Number: CL-B.I. PHARMACEUTICALS,INC./RIDGEFIELD-2019-BI-024093

PATIENT
  Age: 90 Year
  Sex: Female

DRUGS (2)
  1. PRADAXA [Suspect]
     Active Substance: DABIGATRAN ETEXILATE MESYLATE
     Indication: HIP SURGERY
     Route: 065
  2. PRADAXA [Suspect]
     Active Substance: DABIGATRAN ETEXILATE MESYLATE
     Indication: PROPHYLAXIS

REACTIONS (5)
  - Upper gastrointestinal haemorrhage [Fatal]
  - Hypovolaemic shock [Fatal]
  - Multiple organ dysfunction syndrome [Fatal]
  - Duodenal ulcer [Fatal]
  - Haematuria [Recovered/Resolved]
